FAERS Safety Report 14760570 (Version 1)
Quarter: 2018Q2

REPORT INFORMATION
  Report Type: Spontaneous
  Country: US (occurrence: US)
  Receive Date: 20180414
  Receipt Date: 20180414
  Transmission Date: 20180711
  Serious: Yes (Other)
  Sender: FDA-Public Use
  Company Number: US-TEVA-2018-US-880030

PATIENT
  Sex: Female

DRUGS (1)
  1. DICLOFENAC DR [Suspect]
     Active Substance: DICLOFENAC SODIUM
     Route: 065
     Dates: end: 201709

REACTIONS (1)
  - Deafness [Not Recovered/Not Resolved]

NARRATIVE: CASE EVENT DATE: 201709
